FAERS Safety Report 6636716-6 (Version None)
Quarter: 2010Q1

REPORT INFORMATION
  Report Type: 
  Country: None (occurrence: None)
  Receive Date: 20100316
  Receipt Date: 20100308
  Transmission Date: 20100710
  Serious: Yes (Hospitalization)
  Sender: FDA-Public Use
  Company Number: B0638138A

PATIENT
  Age: 67 Year
  Sex: Female

DRUGS (5)
  1. RANITIDINE HCL [Suspect]
     Indication: THERAPEUTIC PROCEDURE
     Route: 048
     Dates: start: 20100105, end: 20100105
  2. ZOPHREN [Suspect]
     Indication: THERAPEUTIC PROCEDURE
     Route: 042
     Dates: start: 20100105, end: 20100105
  3. BEVACIZUMAB [Suspect]
     Indication: CHEMOTHERAPY
     Dosage: 900MG PER DAY
     Route: 042
     Dates: start: 20100105, end: 20100105
  4. TAXOTERE [Suspect]
     Indication: CHEMOTHERAPY
     Dosage: 160MG PER DAY
     Route: 042
     Dates: start: 20100105, end: 20100105
  5. MEDROL [Concomitant]
     Indication: CHEMOTHERAPY
     Route: 048
     Dates: start: 20100105

REACTIONS (2)
  - COLITIS ISCHAEMIC [None]
  - RECTAL HAEMORRHAGE [None]
